FAERS Safety Report 19450831 (Version 1)
Quarter: 2021Q2

REPORT INFORMATION
  Report Type: Spontaneous
  Country: JP (occurrence: JP)
  Receive Date: 20210622
  Receipt Date: 20210622
  Transmission Date: 20210717
  Serious: Yes (Other)
  Sender: FDA-Public Use
  Company Number: JP-BAYER-2021-160522

PATIENT
  Age: 20 Year
  Sex: Female

DRUGS (3)
  1. MACITENTAN [Concomitant]
     Active Substance: MACITENTAN
  2. EPOPROSTENOL. [Concomitant]
     Active Substance: EPOPROSTENOL
  3. ADEMPAS [Suspect]
     Active Substance: RIOCIGUAT

REACTIONS (1)
  - Pulmonary congestion [None]
